FAERS Safety Report 17548427 (Version 1)
Quarter: 2020Q1

REPORT INFORMATION
  Report Type: Report from Study
  Country: MX (occurrence: MX)
  Receive Date: 20200317
  Receipt Date: 20200317
  Transmission Date: 20200409
  Serious: Yes (Hospitalization, Other)
  Sender: FDA-Public Use
  Company Number: PHHY2017MX016655

PATIENT
  Age: 68 Year
  Sex: Female
  Weight: 49 kg

DRUGS (13)
  1. TRILEPTAL [Suspect]
     Active Substance: OXCARBAZEPINE
     Dosage: 1.5 DF, QD, STOPPED 2 YEARS AGO
     Route: 048
     Dates: start: 1999
  2. TRILEPTAL [Suspect]
     Active Substance: OXCARBAZEPINE
     Dosage: 0.5 DF, BID, STARTED 2 YEARS AGO
     Route: 048
  3. TRILEPTAL [Suspect]
     Active Substance: OXCARBAZEPINE
     Dosage: 1 DF, BID
     Route: 048
     Dates: start: 1998, end: 1999
  4. SENOKOT [Concomitant]
     Active Substance: SENNOSIDES
     Dosage: 1 DF, QD (IN THE MORNING SINCE 7 YEARS AGO)
     Route: 048
  5. SENOKOT [Concomitant]
     Active Substance: SENNOSIDES
     Indication: CONSTIPATION
     Dosage: 1 DF, QD
     Route: 048
  6. TOPAMAX [Concomitant]
     Active Substance: TOPIRAMATE
     Indication: PRODUCT USED FOR UNKNOWN INDICATION
     Dosage: 2 DF, QD
     Route: 048
     Dates: start: 1992
  7. ARLEVERT [Concomitant]
     Active Substance: CINNARIZINE\DIMENHYDRINATE
     Indication: PROPHYLAXIS
     Dosage: 1 DF, QD( AT NIGHT FROM 8 MONTHS AGO)
     Route: 048
  8. TAFITRAM [Concomitant]
     Indication: COUGH
     Dosage: 2 DF, QD
     Route: 048
     Dates: start: 202002
  9. SERMION [Concomitant]
     Active Substance: NICERGOLINE
     Indication: PROPHYLAXIS
     Dosage: 2 DF, QD (8 MONTHS AGO)
     Route: 048
  10. DAFLON [Concomitant]
     Indication: PAIN
  11. TRILEPTAL [Suspect]
     Active Substance: OXCARBAZEPINE
     Indication: GENERALISED NON-CONVULSIVE EPILEPSY
     Dosage: 1.5 DF, QD
     Route: 048
     Dates: start: 1995
  12. DUSPATALIN [Concomitant]
     Active Substance: MEBEVERINE
     Indication: INFLAMMATION
     Dosage: 2 DF, QD
     Route: 048
     Dates: start: 1992
  13. DAFLON [Concomitant]
     Indication: COUGH
     Dosage: 1 DF, QD (AT NIGHT)
     Route: 048
     Dates: start: 202002

REACTIONS (18)
  - Amnesia [Not Recovered/Not Resolved]
  - Memory impairment [Not Recovered/Not Resolved]
  - Epilepsy [Unknown]
  - Salivary gland cancer [Unknown]
  - Somnolence [Not Recovered/Not Resolved]
  - Sensory loss [Not Recovered/Not Resolved]
  - Wrong technique in product usage process [Not Recovered/Not Resolved]
  - Malaise [Unknown]
  - Feeling abnormal [Not Recovered/Not Resolved]
  - Hernia [Not Recovered/Not Resolved]
  - Balance disorder [Not Recovered/Not Resolved]
  - Oropharyngeal discomfort [Unknown]
  - Seizure [Unknown]
  - Pruritus [Not Recovered/Not Resolved]
  - Fall [Recovered/Resolved]
  - Thyroid disorder [Not Recovered/Not Resolved]
  - Loss of consciousness [Not Recovered/Not Resolved]
  - Product prescribing error [Not Recovered/Not Resolved]

NARRATIVE: CASE EVENT DATE: 1997
